FAERS Safety Report 17572931 (Version 3)
Quarter: 2020Q2

REPORT INFORMATION
  Report Type: Spontaneous
  Country: IT (occurrence: IT)
  Receive Date: 20200323
  Receipt Date: 20200429
  Transmission Date: 20200713
  Serious: Yes (Hospitalization, Other)
  Sender: FDA-Public Use
  Company Number: IT-GALDERMA-IT2020014668

PATIENT

DRUGS (8)
  1. CEFTRIAXONE. [Concomitant]
     Active Substance: CEFTRIAXONE
     Indication: ANTI-INFECTIVE THERAPY
     Route: 065
  2. AMOXICILLIN-CLAVULANIC ACID [Concomitant]
     Active Substance: AMOXICILLIN\CLAVULANIC ACID
     Indication: ANTI-INFECTIVE THERAPY
     Route: 065
  3. VANCOMYCIN [Concomitant]
     Active Substance: VANCOMYCIN
     Indication: ANTI-INFECTIVE THERAPY
     Route: 065
  4. GENTAMICIN. [Concomitant]
     Active Substance: GENTAMICIN
     Indication: ANTI-INFECTIVE THERAPY
     Route: 065
  5. CEFTAZIDIME. [Concomitant]
     Active Substance: CEFTAZIDIME
     Indication: ANTI-INFECTIVE THERAPY
     Route: 065
  6. ENOXAPARIN [Concomitant]
     Active Substance: ENOXAPARIN
     Indication: ANTICOAGULANT THERAPY
     Route: 065
  7. METRONIDAZOLE. [Suspect]
     Active Substance: METRONIDAZOLE
     Indication: PRODUCT USED FOR UNKNOWN INDICATION
     Route: 065
  8. ACICLOVIR [Concomitant]
     Active Substance: ACYCLOVIR
     Indication: ANTI-INFECTIVE THERAPY
     Route: 065

REACTIONS (3)
  - Off label use [Recovered/Resolved]
  - Drug reaction with eosinophilia and systemic symptoms [Recovered/Resolved]
  - Product use issue [Recovered/Resolved]
